FAERS Safety Report 8281393-4 (Version None)
Quarter: 2012Q2

REPORT INFORMATION
  Report Type: 
  Country: None (occurrence: None)
  Receive Date: 20120410
  Receipt Date: 20120410
  Transmission Date: 20120825
  Serious: Yes (Other)
  Sender: FDA-Public Use
  Company Number: None

PATIENT
  Age: 66 Year
  Sex: Female
  Weight: 45.3597 kg

DRUGS (2)
  1. AVELOX [Suspect]
     Indication: COUGH
     Dosage: 400 MG 1 X DAILY
     Dates: start: 20120312, end: 20120319
  2. AVELOX [Suspect]
     Indication: RESPIRATORY TRACT INFECTION
     Dosage: 400 MG 1 X DAILY
     Dates: start: 20120312, end: 20120319

REACTIONS (5)
  - FATIGUE [None]
  - NAUSEA [None]
  - APATHY [None]
  - HEADACHE [None]
  - ABDOMINAL PAIN [None]
